FAERS Safety Report 14970609 (Version 1)
Quarter: 2018Q2

REPORT INFORMATION
  Report Type: Spontaneous
  Country: US (occurrence: US)
  Receive Date: 20180604
  Receipt Date: 20180604
  Transmission Date: 20180711
  Serious: Yes (Other)
  Sender: FDA-Public Use
  Company Number: US-ZYDUS-020296

PATIENT
  Age: 61 Year
  Sex: Female

DRUGS (1)
  1. MORPHINE/MORPHINE HYDROCHLORIDE/MORPHINE SULFATE/MORPHINE TARTRATE [Suspect]
     Active Substance: MORPHINE\MORPHINE HYDROCHLORIDE\MORPHINE SULFATE\MORPHINE TARTRATE
     Indication: PRODUCT USED FOR UNKNOWN INDICATION
     Dosage: MORPHINE VIAL (200MG/20ML), 100MG INSTEAD OF THE INTENDED 10 MG
     Route: 014

REACTIONS (4)
  - Unresponsive to stimuli [Recovered/Resolved]
  - Incorrect dose administered [Unknown]
  - Drug dispensing error [Unknown]
  - Accidental overdose [Unknown]
